FAERS Safety Report 9174594 (Version 1)
Quarter: 2013Q1

REPORT INFORMATION
  Report Type: Spontaneous
  Country: US (occurrence: US)
  Receive Date: 20130320
  Receipt Date: 20130320
  Transmission Date: 20140127
  Serious: No
  Sender: FDA-Public Use
  Company Number: US-MYLANLABS-2013S1000269

PATIENT
  Age: 57 Year
  Sex: Female
  Weight: 79.38 kg

DRUGS (2)
  1. ESTRADIOL TRANSDERMAL SYSTEM, USP [Suspect]
     Indication: HORMONE REPLACEMENT THERAPY
     Dosage: CHANGE WEEKLY
     Route: 062
     Dates: start: 201211
  2. METHIMAZOLE [Concomitant]
     Indication: THYROID DISORDER

REACTIONS (3)
  - Drug ineffective [Not Recovered/Not Resolved]
  - Hot flush [Not Recovered/Not Resolved]
  - Application site pruritus [Not Recovered/Not Resolved]
